FAERS Safety Report 4618794-9 (Version None)
Quarter: 2005Q1

REPORT INFORMATION
  Report Type: 
  Country: None (occurrence: None)
  Receive Date: 20050323
  Receipt Date: 20050308
  Transmission Date: 20050727
  Serious: Yes (Other)
  Sender: FDA-Public Use
  Company Number: US_0502113254

PATIENT
  Age: 37 Year
  Sex: Female
  Weight: 80 kg

DRUGS (10)
  1. HUMATROPE [Suspect]
     Indication: GROWTH HORMONE DEFICIENCY
     Dosage: 0.5 MG/1 DAY
     Dates: start: 20020601, end: 20050221
  2. SYNTHROID [Concomitant]
  3. PREDNISONE [Concomitant]
  4. ESTRADIOL [Concomitant]
  5. PROMETRIUM [Concomitant]
  6. OXYCONTIN [Concomitant]
  7. OXYCONTIN [Concomitant]
  8. CLARINEX [Concomitant]
  9. PROTONIX [Concomitant]
  10. VALTREX [Concomitant]

REACTIONS (1)
  - BREAST CANCER [None]
